FAERS Safety Report 14868742 (Version 1)
Quarter: 2018Q2

REPORT INFORMATION
  Report Type: Spontaneous
  Country: US (occurrence: US)
  Receive Date: 20180509
  Receipt Date: 20180509
  Transmission Date: 20180711
  Serious: No
  Sender: FDA-Public Use
  Company Number: US-PFIZER INC-2018185253

PATIENT
  Age: 3 Year
  Sex: Male

DRUGS (1)
  1. LEVOTHYROXINE SODIUM. [Suspect]
     Active Substance: LEVOTHYROXINE SODIUM
     Dosage: 50 UG, UNK (HAS BEEN TAKING 2 PILLS)
     Route: 048

REACTIONS (3)
  - Incorrect dosage administered [Unknown]
  - Blood thyroid stimulating hormone decreased [Unknown]
  - Drug dispensing error [Unknown]
